FAERS Safety Report 9040088 (Version 1)
Quarter: 2013Q1

REPORT INFORMATION
  Report Type: Report from Study
  Country: US (occurrence: US)
  Receive Date: 20130130
  Receipt Date: 20130130
  Transmission Date: 20140127
  Serious: No
  Sender: FDA-Public Use
  Company Number: US-ABBOTT-12P-163-0952252-00

PATIENT
  Age: 38 Year
  Sex: Male

DRUGS (8)
  1. HUMIRA 40 MG/0.8 ML PEN [Suspect]
     Indication: CROHN^S DISEASE
     Dosage: 160MG LOADING DOSE
     Dates: start: 20120627
  2. NEXIUM [Concomitant]
     Indication: GASTROOESOPHAGEAL REFLUX DISEASE
     Dosage: 40MG DAILY
  3. EXFORGE [Concomitant]
     Indication: HYPERTENSION
     Dosage: 5/160MG DAILY
  4. LEXAPRO [Concomitant]
     Indication: ANXIETY
     Dosage: 10MG DAILY
  5. FOLIC ACID [Concomitant]
     Indication: VITAMIN SUPPLEMENTATION
     Dosage: 1MG DAILY
  6. ASACOL HD [Concomitant]
     Indication: CROHN^S DISEASE
     Dosage: 3 PILLS IN THE MORNING AND 2 PILLS AT NIGHT
  7. MULTIVITAMIN [Concomitant]
     Indication: PRODUCT USED FOR UNKNOWN INDICATION
  8. CALCIUM WITH VITAMIN D [Concomitant]
     Indication: MINERAL SUPPLEMENTATION
     Dosage: 600MG DAILY

REACTIONS (1)
  - Fatigue [Not Recovered/Not Resolved]
